FAERS Safety Report 5988685-X (Version None)
Quarter: 2008Q4

REPORT INFORMATION
  Report Type: 
  Country: None (occurrence: None)
  Receive Date: 20081210
  Receipt Date: 20081201
  Transmission Date: 20090506
  Serious: Yes (Hospitalization, Other)
  Sender: FDA-Public Use
  Company Number: PHHY2008JP29129

PATIENT
  Age: 43 Year
  Sex: Male

DRUGS (3)
  1. CYCLOSPORINE [Suspect]
     Indication: RENAL TRANSPLANT
     Route: 065
  2. MYCOPHENOLATE MOFETIL [Suspect]
     Indication: RENAL TRANSPLANT
     Route: 065
  3. PREDNISOLONE [Concomitant]
     Route: 065

REACTIONS (15)
  - ANGIOTENSIN CONVERTING ENZYME INCREASED [None]
  - ATYPICAL MYCOBACTERIAL INFECTION [None]
  - BLOOD CALCIUM INCREASED [None]
  - DERMATITIS [None]
  - GRANULOMA [None]
  - HYPERVITAMINOSIS [None]
  - KIDNEY TRANSPLANT REJECTION [None]
  - LYSOZYME INCREASED [None]
  - NECROSIS [None]
  - PYREXIA [None]
  - RASH [None]
  - RENAL IMPAIRMENT [None]
  - SARCOIDOSIS [None]
  - TUBULOINTERSTITIAL NEPHRITIS [None]
  - VASCULITIS [None]
